FAERS Safety Report 5567541-5 (Version None)
Quarter: 2007Q4

REPORT INFORMATION
  Report Type: 
  Country: None (occurrence: None)
  Receive Date: 20071214
  Receipt Date: 20071204
  Transmission Date: 20080405
  Serious: Yes (Hospitalization)
  Sender: FDA-Public Use
  Company Number: 2007AL005237

PATIENT
  Age: 7 Year
  Sex: Male

DRUGS (3)
  1. DICLOFENAC SODIUM [Suspect]
     Indication: POSTOPERATIVE CARE
     Dosage: RTL
  2. IBUPROFEN [Suspect]
     Indication: JUVENILE ARTHRITIS
     Dosage: 10 MG/KG;Q8H
  3. INDOMETHACIN [Concomitant]

REACTIONS (3)
  - DEHYDRATION [None]
  - RENAL FAILURE ACUTE [None]
  - VOMITING [None]
